FAERS Safety Report 6845851-9 (Version None)
Quarter: 2010Q3

REPORT INFORMATION
  Report Type: 
  Country: None (occurrence: None)
  Receive Date: 20100715
  Receipt Date: 20070907
  Transmission Date: 20110219
  Serious: No
  Sender: FDA-Public Use
  Company Number: US-PFIZER INC-2007071493

PATIENT
  Sex: Male
  Weight: 102.1 kg

DRUGS (4)
  1. CHANTIX [Suspect]
     Indication: SMOKING CESSATION THERAPY
     Dates: start: 20070501
  2. AZITHROMYCIN [Suspect]
     Indication: MONOCYTOSIS
     Dates: start: 20070724
  3. CORTICOSTEROID NOS [Suspect]
     Indication: MONOCYTOSIS
     Dates: start: 20070724
  4. NEXIUM [Concomitant]
     Indication: GASTROOESOPHAGEAL REFLUX DISEASE

REACTIONS (8)
  - DRUG INEFFECTIVE [None]
  - EUPHORIC MOOD [None]
  - HYPERSENSITIVITY [None]
  - MONOCYTOSIS [None]
  - OROPHARYNGEAL PAIN [None]
  - RASH [None]
  - SEMEN ANALYSIS ABNORMAL [None]
  - TONSILLITIS [None]
